FAERS Safety Report 7224466-7 (Version None)
Quarter: 2011Q1

REPORT INFORMATION
  Report Type: 
  Country: None (occurrence: None)
  Receive Date: 20110108
  Receipt Date: 20110108
  Transmission Date: 20110831
  Serious: No
  Sender: FDA-Public Use
  Company Number: None

PATIENT

DRUGS (1)
  1. TERAZOSIN HCL [Suspect]
     Indication: URETHRAL DISORDER
     Dosage: 5 MG. 1ONCE A DAY

REACTIONS (1)
  - ERECTILE DYSFUNCTION [None]
